FAERS Safety Report 4280253-3 (Version None)
Quarter: 2004Q1

REPORT INFORMATION
  Report Type: 
  Country: None (occurrence: None)
  Receive Date: 20040126
  Receipt Date: 20040112
  Transmission Date: 20041129
  Serious: Yes (Disabling)
  Sender: FDA-Public Use
  Company Number: 2004SE00150

PATIENT
  Age: 30 Year
  Sex: Male
  Weight: 87.9 kg

DRUGS (5)
  1. SEROQUEL [Suspect]
     Indication: SCHIZOPHRENIA
     Dosage: 25 MG DAILY PO
     Route: 048
     Dates: start: 20031118
  2. SEROQUEL [Suspect]
     Indication: SCHIZOPHRENIA
     Dosage: 100 MG DAILY PO
     Route: 048
     Dates: end: 20031212
  3. TAFIL [Concomitant]
  4. ARINTAPIN [Concomitant]
  5. ZELDOX [Concomitant]

REACTIONS (4)
  - ANXIETY [None]
  - CHOKING SENSATION [None]
  - CONSTIPATION [None]
  - MUSCLE RIGIDITY [None]
